FAERS Safety Report 19372358 (Version 4)
Quarter: 2025Q3

REPORT INFORMATION
  Report Type: Spontaneous
  Country: AU (occurrence: AU)
  Receive Date: 20210604
  Receipt Date: 20250917
  Transmission Date: 20251020
  Serious: Yes (Death, Life-Threatening, Hospitalization, Other)
  Sender: PFIZER
  Company Number: AU-PFIZER INC-2021630092

PATIENT
  Age: 55 Year
  Sex: Female

DRUGS (8)
  1. SERTRALINE HYDROCHLORIDE [Suspect]
     Active Substance: SERTRALINE HYDROCHLORIDE
     Indication: Depression
  2. METHYLPREDNISOLONE SULEPTANATE [Suspect]
     Active Substance: METHYLPREDNISOLONE SULEPTANATE
     Indication: Vasculitis
  3. METHYLPREDNISOLONE SULEPTANATE [Suspect]
     Active Substance: METHYLPREDNISOLONE SULEPTANATE
     Route: 048
  4. METHYLPREDNISOLONE SULEPTANATE [Suspect]
     Active Substance: METHYLPREDNISOLONE SULEPTANATE
  5. FLUDROCORTISONE [Concomitant]
     Active Substance: FLUDROCORTISONE
  6. CYCLOPHOSPHAMIDE [Concomitant]
     Active Substance: CYCLOPHOSPHAMIDE
     Indication: Vasculitis
  7. CYCLOPHOSPHAMIDE [Concomitant]
     Active Substance: CYCLOPHOSPHAMIDE
     Indication: Vasculitis
  8. RITUXIMAB [Concomitant]
     Active Substance: RITUXIMAB

REACTIONS (7)
  - Reversible cerebral vasoconstriction syndrome [Fatal]
  - Condition aggravated [Fatal]
  - Brain oedema [Fatal]
  - Brain herniation [Fatal]
  - Cerebellar infarction [Fatal]
  - Cerebral ischaemia [Fatal]
  - Cerebral infarction [Fatal]
